FAERS Safety Report 15779180 (Version 2)
Quarter: 2019Q3

REPORT INFORMATION
  Report Type: Spontaneous
  Country: US (occurrence: US)
  Receive Date: 20190101
  Receipt Date: 20190807
  Transmission Date: 20191004
  Serious: Yes (Other)
  Sender: FDA-Public Use
  Company Number: US-ASTRAZENECA-2018SF71861

PATIENT
  Age: 21882 Day
  Sex: Male
  Weight: 86.2 kg

DRUGS (13)
  1. CYCLOSPORIN [Concomitant]
     Active Substance: CYCLOSPORINE
  2. PEPCID [Concomitant]
     Active Substance: FAMOTIDINE
  3. ZANTAC [Concomitant]
     Active Substance: RANITIDINE HYDROCHLORIDE
  4. PRILOSEC OTC [Suspect]
     Active Substance: OMEPRAZOLE MAGNESIUM
     Route: 048
     Dates: start: 2013, end: 2014
  5. TYLENOL [Concomitant]
     Active Substance: ACETAMINOPHEN
  6. METOCLOPRAMIDE. [Concomitant]
     Active Substance: METOCLOPRAMIDE
  7. PREVACID [Suspect]
     Active Substance: LANSOPRAZOLE
     Indication: GASTROOESOPHAGEAL REFLUX DISEASE
     Route: 065
     Dates: start: 1988, end: 2014
  8. BABY ASPIRIN [Concomitant]
     Active Substance: ASPIRIN
  9. PRILOSEC [Suspect]
     Active Substance: OMEPRAZOLE MAGNESIUM
     Indication: GASTROOESOPHAGEAL REFLUX DISEASE
     Route: 048
     Dates: start: 1988, end: 2014
  10. PREVACID 24 HR [Suspect]
     Active Substance: LANSOPRAZOLE
     Route: 065
  11. TACROLIMUS. [Concomitant]
     Active Substance: TACROLIMUS
  12. TRAMADOL. [Concomitant]
     Active Substance: TRAMADOL
  13. TUMS [Concomitant]
     Active Substance: CALCIUM CARBONATE

REACTIONS (3)
  - Renal failure [Unknown]
  - Acute kidney injury [Not Recovered/Not Resolved]
  - End stage renal disease [Unknown]

NARRATIVE: CASE EVENT DATE: 20150126
